FAERS Safety Report 9777664 (Version 1)
Quarter: 2013Q4

REPORT INFORMATION
  Report Type: Spontaneous
  Country: FR (occurrence: FR)
  Receive Date: 20131223
  Receipt Date: 20131223
  Transmission Date: 20140711
  Serious: Yes (Hospitalization)
  Sender: FDA-Public Use
  Company Number: FR-ASTRAZENECA-2013SE92596

PATIENT
  Age: 15608 Day
  Sex: Female

DRUGS (12)
  1. INEXIUM [Suspect]
     Route: 048
     Dates: end: 20131106
  2. ADENURIC [Suspect]
     Indication: GOUT
     Route: 048
     Dates: start: 201307, end: 20131106
  3. CLAMOXYL [Concomitant]
     Indication: ERYSIPELAS
     Route: 065
     Dates: start: 20131016, end: 20131022
  4. ADVIL [Concomitant]
     Route: 048
     Dates: start: 20131016, end: 20131020
  5. DEPAKOTE [Concomitant]
     Route: 065
  6. DEPAKOTE [Concomitant]
     Route: 065
  7. SERESTA [Concomitant]
     Route: 065
  8. ORACILLINE [Concomitant]
     Route: 065
  9. AKINETON [Concomitant]
     Dosage: 4 MG SR DAILY.
     Route: 065
  10. ABILIFY [Concomitant]
     Route: 065
  11. LASILIX [Concomitant]
     Route: 065
     Dates: end: 20131126
  12. SOLIRIS [Concomitant]
     Dosage: 1 DF EVERY 15 DAYS
     Route: 065
     Dates: start: 201108, end: 20130923

REACTIONS (4)
  - Renal failure acute [Recovering/Resolving]
  - Oedema [Recovering/Resolving]
  - Dyspnoea exertional [Unknown]
  - Tubulointerstitial nephritis [Recovering/Resolving]
